FAERS Safety Report 20429949 (Version 1)
Quarter: 2022Q1

REPORT INFORMATION
  Report Type: Report from Study
  Country: FR (occurrence: FR)
  Receive Date: 20220204
  Receipt Date: 20220204
  Transmission Date: 20220423
  Serious: Yes (Other)
  Sender: FDA-Public Use
  Company Number: FR-SERVIER-S19003617

PATIENT

DRUGS (9)
  1. PEGASPARGASE [Suspect]
     Active Substance: PEGASPARGASE
     Indication: Acute lymphocytic leukaemia
     Dosage: 1387.5 IU, D4 OF EACH CYCLE
     Dates: start: 20191026, end: 20191026
  2. DAUNORUBICIN [Suspect]
     Active Substance: DAUNORUBICIN
     Indication: Acute lymphocytic leukaemia
     Dosage: 14 MG ON S1, D8 AND D15 OF EACH CYCLE
     Route: 042
     Dates: start: 20181023, end: 20181106
  3. VINCRISTINE [Suspect]
     Active Substance: VINCRISTINE
     Indication: Acute lymphocytic leukaemia
     Dosage: 0.83 MG ON D1, D8 AND D15 OF EACH CYCLE
     Route: 042
     Dates: start: 20181023, end: 20181106
  4. METHOTREXATE [Suspect]
     Active Substance: METHOTREXATE
     Indication: Acute lymphocytic leukaemia
     Dosage: 10 MG ON D4 AND D31 OF EACH CYCLE
     Route: 037
     Dates: start: 20181026, end: 20181122
  5. DEXAMETHASONE [Suspect]
     Active Substance: DEXAMETHASONE
     Indication: Acute lymphocytic leukaemia
     Dosage: 5.72 MG ON D1 TO D15 OF EACH CYCLE
     Route: 048
     Dates: start: 20181023, end: 20181106
  6. CYCLOPHOSPHAMIDE [Suspect]
     Active Substance: CYCLOPHOSPHAMIDE
     Indication: Acute lymphocytic leukaemia
     Dosage: 58 MG ON D29 OF EACH CYCLE
     Route: 042
     Dates: start: 20181120, end: 20181120
  7. CYTARABINE [Suspect]
     Active Substance: CYTARABINE
     Indication: Acute lymphocytic leukaemia
     Dosage: 43 MG ON D31 TO D34 AND D38 TO D41 OF EACH CYCLE
     Route: 037
     Dates: start: 20181122, end: 20181202
  8. THIOGUANINE [Suspect]
     Active Substance: THIOGUANINE
     Indication: Acute lymphocytic leukaemia
     Dosage: 34 MG ON D29 TO D42 OF EACH CYCLE
     Route: 042
     Dates: start: 20181120, end: 20181203
  9. BACTRIM [Concomitant]
     Active Substance: SULFAMETHOXAZOLE\TRIMETHOPRIM
     Indication: Infection prophylaxis
     Dosage: 280 MG, QD
     Route: 048
     Dates: start: 20181023

REACTIONS (3)
  - Alanine aminotransferase increased [Recovered/Resolved]
  - Aspartate aminotransferase increased [Recovered/Resolved]
  - Gamma-glutamyltransferase increased [Recovered/Resolved]

NARRATIVE: CASE EVENT DATE: 20181030
